FAERS Safety Report 7401348-9 (Version None)
Quarter: 2011Q2

REPORT INFORMATION
  Report Type: 
  Country: None (occurrence: None)
  Receive Date: 20110407
  Receipt Date: 20110328
  Transmission Date: 20111010
  Serious: Yes (Death)
  Sender: FDA-Public Use
  Company Number: FR-GENENTECH-316056

PATIENT

DRUGS (2)
  1. RITUXIMAB [Suspect]
     Indication: B-CELL LYMPHOMA
     Dosage: 375 MG/M2, UNK
     Route: 065
  2. BORTEZOMIB [Suspect]
     Indication: B-CELL LYMPHOMA
     Dosage: 16 MG/M2, UNK
     Route: 065

REACTIONS (4)
  - NEUTROPENIA [None]
  - DEATH [None]
  - DIARRHOEA [None]
  - PERIPHERAL SENSORY NEUROPATHY [None]
